FAERS Safety Report 18207266 (Version 1)
Quarter: 2020Q3

REPORT INFORMATION
  Report Type: Spontaneous
  Country: US (occurrence: US)
  Receive Date: 20200827
  Receipt Date: 20200827
  Transmission Date: 20201103
  Serious: Yes (Life-Threatening, Hospitalization, Disabling, Other)
  Sender: FDA-Public Use
  Company Number: None

PATIENT
  Age: 24 Year
  Sex: Female
  Weight: 81 kg

DRUGS (1)
  1. REGLAN [Suspect]
     Active Substance: METOCLOPRAMIDE HYDROCHLORIDE
     Indication: NAUSEA
     Dosage: ?          OTHER STRENGTH:EACH;QUANTITY:1 TABLET(S);?
     Route: 048
     Dates: start: 20180907, end: 20200515

REACTIONS (8)
  - Tremor [None]
  - Gait inability [None]
  - Product prescribing issue [None]
  - Impaired self-care [None]
  - Hypersomnia [None]
  - Seizure [None]
  - Psychogenic seizure [None]
  - Product use complaint [None]

NARRATIVE: CASE EVENT DATE: 20181017
